FAERS Safety Report 14998840 (Version 4)
Quarter: 2018Q3

REPORT INFORMATION
  Report Type: Spontaneous
  Country: DE (occurrence: DE)
  Receive Date: 20180612
  Receipt Date: 20180814
  Transmission Date: 20181010
  Serious: Yes (Life-Threatening, Hospitalization)
  Sender: FDA-Public Use
  Company Number: DE-ROCHE-2137720

PATIENT
  Age: 36 Year
  Sex: Female
  Weight: 83 kg

DRUGS (7)
  1. SALBUHEXAL [Concomitant]
     Active Substance: ALBUTEROL
     Indication: ASTHMA
     Dosage: 2 DF, UNK (AS NEEDED)
     Route: 055
  2. SALBUTAMOL [Concomitant]
     Active Substance: ALBUTEROL
     Indication: ASTHMA
     Route: 055
  3. CETIRIZIN [Concomitant]
     Active Substance: CETIRIZINE HYDROCHLORIDE
     Indication: MULTIPLE ALLERGIES
  4. XOLAIR [Suspect]
     Active Substance: OMALIZUMAB
     Indication: ASTHMA
     Dosage: 150 MG
     Route: 058
     Dates: start: 20180430, end: 20180430
  5. XOLAIR [Suspect]
     Active Substance: OMALIZUMAB
     Indication: FOOD ALLERGY
  6. SYNTARIS NASAL SPRAY [Concomitant]
     Indication: RHINITIS ALLERGIC
     Dosage: 1 DF, BID
     Route: 065
  7. CETIRIZIN [Concomitant]
     Active Substance: CETIRIZINE HYDROCHLORIDE
     Indication: NASOPHARYNGITIS
     Route: 048

REACTIONS (5)
  - Anaphylactic reaction [Recovered/Resolved]
  - Product use in unapproved indication [Unknown]
  - Oedema mucosal [Recovered/Resolved]
  - Conjunctivitis [Recovered/Resolved]
  - Fluid retention [Not Recovered/Not Resolved]

NARRATIVE: CASE EVENT DATE: 20180430
